FAERS Safety Report 10896778 (Version 1)
Quarter: 2015Q1

REPORT INFORMATION
  Report Type: Report from Study
  Country: FR (occurrence: FR)
  Receive Date: 20150309
  Receipt Date: 20150309
  Transmission Date: 20150721
  Serious: Yes (Hospitalization)
  Sender: FDA-Public Use
  Company Number: FR-ROCHE-1549433

PATIENT
  Age: 49 Year
  Sex: Female

DRUGS (3)
  1. RANIBIZUMAB [Suspect]
     Active Substance: RANIBIZUMAB
     Indication: DIABETIC RETINAL OEDEMA
     Dosage: MOST RECENT DOSE OF RANIBIZUMAB PRIOR TO THE EVENT: 12/DEC/2012
     Route: 050
     Dates: start: 20121114
  2. RANIBIZUMAB [Suspect]
     Active Substance: RANIBIZUMAB
     Route: 050
     Dates: start: 20130116
  3. RANIBIZUMAB [Suspect]
     Active Substance: RANIBIZUMAB
     Route: 050
     Dates: start: 20130429

REACTIONS (2)
  - Intraocular haematoma [Recovered/Resolved]
  - Retinal detachment [Recovered/Resolved]

NARRATIVE: CASE EVENT DATE: 20121212
